FAERS Safety Report 11751700 (Version 1)
Quarter: 2015Q4

REPORT INFORMATION
  Report Type: Spontaneous
  Country: US (occurrence: US)
  Receive Date: 20151118
  Receipt Date: 20151118
  Transmission Date: 20160304
  Serious: Yes (Other)
  Sender: FDA-Public Use
  Company Number: US-BAXTER-2015BAX061138

PATIENT
  Age: 36 Year
  Sex: Female

DRUGS (1)
  1. TISSEEL KIT [Suspect]
     Active Substance: FIBRINOGEN HUMAN\THROMBIN HUMAN
     Indication: SPINAL OPERATION
     Route: 065
     Dates: start: 201404

REACTIONS (3)
  - Spondylitis [Not Recovered/Not Resolved]
  - Feeling abnormal [Unknown]
  - Arthralgia [Not Recovered/Not Resolved]

NARRATIVE: CASE EVENT DATE: 201404
